FAERS Safety Report 10011553 (Version 1)
Quarter: 2014Q1

REPORT INFORMATION
  Report Type: Spontaneous
  Country: JP (occurrence: JP)
  Receive Date: 20140314
  Receipt Date: 20140314
  Transmission Date: 20141002
  Serious: Yes (Other)
  Sender: FDA-Public Use
  Company Number: JP-ASTELLAS-2014JP002106

PATIENT
  Age: 3 Year
  Sex: Male

DRUGS (5)
  1. TACROLIMUS [Suspect]
     Indication: PROPHYLAXIS AGAINST GRAFT VERSUS HOST DISEASE
     Route: 065
  2. TACROLIMUS [Suspect]
     Route: 065
  3. PREDNISOLONE [Suspect]
     Route: 065
  4. PREDNISOLONE [Suspect]
     Route: 065
  5. METHOTREXATE [Concomitant]
     Indication: PROPHYLAXIS AGAINST GRAFT VERSUS HOST DISEASE
     Route: 065

REACTIONS (4)
  - Drug ineffective [Unknown]
  - Chronic graft versus host disease [Unknown]
  - Posterior reversible encephalopathy syndrome [Unknown]
  - Liver disorder [Unknown]
